FAERS Safety Report 9662875 (Version 2)
Quarter: 2013Q4

REPORT INFORMATION
  Report Type: Spontaneous
  Country: US (occurrence: US)
  Receive Date: 20131031
  Receipt Date: 20131031
  Transmission Date: 20140711
  Serious: No
  Sender: FDA-Public Use
  Company Number: US-PURDUE-USA-2010-0048102

PATIENT
  Age: 54 Year
  Sex: Female
  Weight: 92.06 kg

DRUGS (5)
  1. OXYCONTIN (NDA 22-272) [Suspect]
     Indication: PAIN
     Dosage: 80 MG, QID
     Route: 048
     Dates: start: 201009, end: 20101015
  2. AMBIEN [Concomitant]
     Indication: INSOMNIA
  3. SOMA [Concomitant]
     Indication: MUSCLE SPASMS
     Dosage: 250 MG, TID
     Dates: start: 2005
  4. CLONAZEPAM [Concomitant]
     Indication: ANXIETY
     Dosage: 0.5 MG, Q12H
     Dates: start: 2005
  5. NORCO [Concomitant]
     Indication: BREAKTHROUGH PAIN
     Dosage: 10 MG, Q8H
     Dates: start: 2005

REACTIONS (13)
  - Drug withdrawal syndrome [Not Recovered/Not Resolved]
  - Medication residue present [Not Recovered/Not Resolved]
  - Cardiovascular insufficiency [Not Recovered/Not Resolved]
  - Cough [Not Recovered/Not Resolved]
  - Hot flush [Not Recovered/Not Resolved]
  - Blood pressure increased [Not Recovered/Not Resolved]
  - Dysphonia [Not Recovered/Not Resolved]
  - Heart rate increased [Not Recovered/Not Resolved]
  - Drug ineffective [Not Recovered/Not Resolved]
  - Sleep disorder [Not Recovered/Not Resolved]
  - Vomiting [Not Recovered/Not Resolved]
  - Inadequate analgesia [Not Recovered/Not Resolved]
  - Nausea [Not Recovered/Not Resolved]
